FAERS Safety Report 7114236-2 (Version None)
Quarter: 2010Q4

REPORT INFORMATION
  Report Type: 
  Country: None (occurrence: None)
  Receive Date: 20101119
  Receipt Date: 20101112
  Transmission Date: 20110411
  Serious: Yes (Other)
  Sender: FDA-Public Use
  Company Number: JP-PFIZER INC-2010143035

PATIENT
  Age: 11 Year

DRUGS (2)
  1. SOMATROPIN [Suspect]
     Indication: SMALL FOR DATES BABY
     Dosage: UNK
     Route: 058
     Dates: start: 20080422
  2. SOMATROPIN [Suspect]
     Indication: DWARFISM

REACTIONS (1)
  - RENAL GLYCOSURIA [None]
